FAERS Safety Report 8027623-5 (Version None)
Quarter: 2012Q1

REPORT INFORMATION
  Report Type: 
  Country: None (occurrence: None)
  Receive Date: 20120106
  Receipt Date: 20111226
  Transmission Date: 20120608
  Serious: Yes (Death, Life-Threatening, Hospitalization, Disabling)
  Sender: FDA-Public Use
  Company Number: FR-SANOFI-AVENTIS-2011SA084536

PATIENT
  Age: 52 Year
  Sex: Male

DRUGS (2)
  1. RILUTEK [Suspect]
     Indication: MOTOR NEURONE DISEASE
     Route: 048
     Dates: start: 20030101, end: 20030505
  2. MESTINON [Concomitant]
     Route: 048

REACTIONS (2)
  - HEPATITIS FULMINANT [None]
  - LIVER TRANSPLANT [None]
